FAERS Safety Report 4300525-3 (Version None)
Quarter: 2004Q1

REPORT INFORMATION
  Report Type: 
  Country: None (occurrence: None)
  Receive Date: 20040220
  Receipt Date: 20040129
  Transmission Date: 20041129
  Serious: Yes (Other)
  Sender: FDA-Public Use
  Company Number: PHHO2004JP01764

PATIENT
  Age: 61 Year
  Sex: Male
  Weight: 82 kg

DRUGS (1)
  1. DIOVAN [Suspect]
     Indication: ESSENTIAL HYPERTENSION
     Dosage: 40 MG / DAY
     Route: 048
     Dates: start: 20030108, end: 20030312

REACTIONS (4)
  - DIARRHOEA [None]
  - DIZZINESS [None]
  - ENTERITIS [None]
  - HYPOTENSION [None]
